FAERS Safety Report 24587043 (Version 1)
Quarter: 2024Q4

REPORT INFORMATION
  Report Type: Report from Study
  Country: US (occurrence: US)
  Receive Date: 20241107
  Receipt Date: 20241107
  Transmission Date: 20250115
  Serious: Yes (Other)
  Sender: ABBVIE
  Company Number: US-ABBVIE-5987483

PATIENT
  Sex: Male

DRUGS (2)
  1. DUOPA [Suspect]
     Active Substance: CARBIDOPA\LEVODOPA
     Indication: Parkinson^s disease
     Dosage: FORM STRENGTH: 4.63-20MG?16 HOURS EACH DAY MORNING DOSE: 13ML (LOCKOUT TIME 20 HOURS), ?CONTINUOU...
     Route: 050
     Dates: start: 202310
  2. DUOPA [Suspect]
     Active Substance: CARBIDOPA\LEVODOPA

REACTIONS (4)
  - Postoperative wound infection [Unknown]
  - Dizziness [Unknown]
  - Fall [Unknown]
  - Loss of consciousness [Unknown]
